FAERS Safety Report 8736042 (Version 2)
Quarter: 2012Q4

REPORT INFORMATION
  Report Type: 
  Country: BR (occurrence: BR)
  Receive Date: 20120822
  Receipt Date: 20120907
  Transmission Date: 20130627
  Serious: Yes (Hospitalization)
  Sender: FDA-Public Use
  Company Number: BR-JNJFOC-20120810535

PATIENT
  Age: 81 Year
  Sex: Female

DRUGS (7)
  1. XARELTO [Suspect]
     Indication: PRODUCT USED FOR UNKNOWN INDICATION
     Route: 048
     Dates: start: 20120816
  2. XARELTO [Suspect]
     Indication: PRODUCT USED FOR UNKNOWN INDICATION
     Dosage: 15 mg, OM
     Route: 048
     Dates: start: 20120808, end: 20120812
  3. LOSARTAN [Concomitant]
  4. DILTIAZEM [Concomitant]
  5. FUROSEMIDE [Concomitant]
  6. SPIRONOLACTONE [Concomitant]
  7. SYNTHROID [Concomitant]

REACTIONS (6)
  - Abdominal pain lower [Recovered/Resolved]
  - Malaise [Recovered/Resolved]
  - Oedema peripheral [Recovered/Resolved]
  - Hypopnoea [Recovered/Resolved]
  - Vomiting [Recovered/Resolved]
  - Asthenia [Recovered/Resolved]
